FAERS Safety Report 10207141 (Version 1)
Quarter: 2014Q2

REPORT INFORMATION
  Report Type: Spontaneous
  Country: US (occurrence: None)
  Receive Date: 20140529
  Receipt Date: 20140529
  Transmission Date: 20141212
  Serious: Yes (Disabling)
  Sender: FDA-Public Use
  Company Number: None

PATIENT
  Age: 9 Year
  Sex: Female
  Weight: 29.48 kg

DRUGS (2)
  1. MONTELUKAST [Suspect]
     Indication: SEASONAL ALLERGY
     Dosage: 5 MG TAB CH 1 TABLET AT BEDTIME BY MOUTH-CHEW
     Route: 048
     Dates: start: 20120409, end: 20140418
  2. CLONIDINE HCL [Concomitant]

REACTIONS (11)
  - Bladder disorder [None]
  - Sleep terror [None]
  - Skin disorder [None]
  - Abnormal behaviour [None]
  - Dermatitis [None]
  - Aggression [None]
  - Anxiety [None]
  - Depression [None]
  - Urinary tract infection [None]
  - Irritability [None]
  - Suicidal ideation [None]
